FAERS Safety Report 23598921 (Version 1)
Quarter: 2024Q1

REPORT INFORMATION
  Report Type: Other
  Country: KR (occurrence: None)
  Receive Date: 20240306
  Receipt Date: 20240306
  Transmission Date: 20240410
  Serious: Yes (Death, Other)
  Sender: FDA-Public Use
  Company Number: KR-ROCHE-3409958

PATIENT

DRUGS (2)
  1. ATEZOLIZUMAB [Suspect]
     Active Substance: ATEZOLIZUMAB
     Indication: Hepatocellular carcinoma
     Route: 065
  2. BEVACIZUMAB [Suspect]
     Active Substance: BEVACIZUMAB
     Indication: Hepatocellular carcinoma
     Route: 065

REACTIONS (71)
  - Duodenal perforation [Fatal]
  - Pneumonitis [Fatal]
  - Proteinuria [Unknown]
  - Transaminases increased [Unknown]
  - Azotaemia [Unknown]
  - Asthenia [Unknown]
  - Dermatitis [Unknown]
  - Diarrhoea [Unknown]
  - Hypophagia [Unknown]
  - Bleeding varicose vein [Unknown]
  - Pyrexia [Unknown]
  - Hypokalaemia [Unknown]
  - Jaundice [Unknown]
  - Nausea [Unknown]
  - Adrenal insufficiency [Unknown]
  - Hepatic encephalopathy [Unknown]
  - Anaemia [Unknown]
  - Oedema peripheral [Unknown]
  - Neutropenia [Unknown]
  - Ascites [Unknown]
  - Gastric ulcer [Unknown]
  - Ulcer haemorrhage [Unknown]
  - Hyperkalaemia [Unknown]
  - Haemoptysis [Unknown]
  - Chest discomfort [Unknown]
  - Haematuria [Unknown]
  - Autoimmune hepatitis [Unknown]
  - Oesophageal ulcer [Unknown]
  - Septic shock [Unknown]
  - Cholangitis [Unknown]
  - Pneumothorax [Unknown]
  - Spontaneous bacterial peritonitis [Unknown]
  - Haemobilia [Unknown]
  - Fracture [Unknown]
  - Gastrointestinal necrosis [Unknown]
  - Anal fistula [Unknown]
  - Intracranial mass [Unknown]
  - Ureterolithiasis [Unknown]
  - Muscular weakness [Unknown]
  - Pancreatitis [Unknown]
  - Thrombocytopenia [Unknown]
  - Hypertension [Unknown]
  - Hypothyroidism [Unknown]
  - Hyponatraemia [Unknown]
  - Abdominal pain upper [Unknown]
  - Back pain [Unknown]
  - Abdominal pain [Unknown]
  - Headache [Unknown]
  - Dizziness [Unknown]
  - Stomatitis [Unknown]
  - Constipation [Unknown]
  - Arthralgia [Unknown]
  - Paraesthesia [Unknown]
  - Hypercalcaemia [Unknown]
  - Cough [Unknown]
  - Hyperuricaemia [Unknown]
  - Pain in extremity [Unknown]
  - Nocturia [Unknown]
  - Palmar-plantar erythrodysaesthesia syndrome [Unknown]
  - Hypogeusia [Unknown]
  - Periodontitis [Unknown]
  - Groin pain [Unknown]
  - Epistaxis [Unknown]
  - Duodenitis [Unknown]
  - Vomiting [Unknown]
  - Pain in extremity [Unknown]
  - Weight decreased [Unknown]
  - Hypersensitivity vasculitis [Unknown]
  - Rhinorrhoea [Unknown]
  - Blister [Unknown]
  - Toothache [Unknown]
